FAERS Safety Report 8610268-3 (Version None)
Quarter: 2012Q3

REPORT INFORMATION
  Report Type: 
  Country: None (occurrence: None)
  Receive Date: 20120810
  Receipt Date: 20120810
  Transmission Date: 20120928
  Serious: Yes (Hospitalization, Disabling)
  Sender: FDA-Public Use
  Company Number: None

PATIENT

DRUGS (1)
  1. LUPRON [Suspect]
     Indication: PROSTATE CANCER
     Dosage: 22.2 IM
     Route: 030
     Dates: start: 20120323, end: 20120613

REACTIONS (5)
  - NO THERAPEUTIC RESPONSE [None]
  - NEOPLASM [None]
  - HYPOAESTHESIA [None]
  - PAIN IN EXTREMITY [None]
  - PARALYSIS [None]
